FAERS Safety Report 10220104 (Version 1)
Quarter: 2014Q2

REPORT INFORMATION
  Report Type: Report from Study
  Country: US (occurrence: US)
  Receive Date: 20140605
  Receipt Date: 20140605
  Transmission Date: 20141212
  Serious: Yes (Hospitalization)
  Sender: FDA-Public Use
  Company Number: US-009507513-1405USA015744

PATIENT
  Age: 57 Year
  Sex: Male
  Weight: 82.86 kg

DRUGS (18)
  1. VORINOSTAT [Suspect]
     Indication: SQUAMOUS CELL CARCINOMA
     Dosage: 300 MG,M-W-F X 7 WEEKS
     Dates: start: 20140303, end: 20140428
  2. CISPLATIN [Suspect]
     Dosage: 220 MG, Q3W X 3
     Route: 042
     Dates: start: 20140310
  3. CISPLATIN [Suspect]
     Dosage: 220 MG, Q3W X 3
     Route: 042
     Dates: start: 20140331
  4. CISPLATIN [Suspect]
     Dosage: 220 MG, Q3W X3
     Route: 042
     Dates: start: 20140421
  5. GLIPIZIDE [Concomitant]
     Dosage: 5 MG, BID
     Route: 050
  6. COMPAZINE [Concomitant]
     Indication: NAUSEA
     Dosage: 10 MG, Q6H, PRN
     Route: 050
  7. COMPAZINE [Concomitant]
     Indication: VOMITING
  8. DOCUSATE SODIUM [Concomitant]
     Dosage: 100 MG, BID
     Route: 050
  9. ONDANSETRON [Concomitant]
     Indication: NAUSEA
     Dosage: 4 MG, Q8H P.R.N
     Route: 050
  10. ONDANSETRON [Concomitant]
     Indication: VOMITING
  11. ZOLPIDEM TARTRATE [Concomitant]
     Indication: INSOMNIA
     Dosage: 10 MG, AT BED TIME P.R.N.
     Route: 050
  12. METFORMIN [Concomitant]
     Dosage: 1000 MG, BID
     Route: 050
  13. FENTANYL [Concomitant]
     Dosage: 25 MICROGRAM, QH X 72 HOURS
  14. FENTANYL [Concomitant]
     Dosage: 12 MICROGRAM, PER HOUR, Q 72 HOURS
  15. LOPERAMIDE HYDROCHLORIDE [Concomitant]
     Indication: DIARRHOEA
     Dosage: 2 MG, PRN
  16. LOPERAMIDE HYDROCHLORIDE [Concomitant]
     Indication: DIARRHOEA
  17. OXYCODONE [Concomitant]
     Indication: PAIN
     Dosage: 2 DF, Q3H P.R.N
     Route: 050
  18. OMEPRAZOLE [Concomitant]
     Dosage: 20 MG, QD
     Route: 050

REACTIONS (4)
  - Pancytopenia [Unknown]
  - Hyperglycaemia [Recovered/Resolved]
  - Hyponatraemia [Unknown]
  - Pneumonia [Not Recovered/Not Resolved]
